FAERS Safety Report 7626864-6 (Version None)
Quarter: 2011Q3

REPORT INFORMATION
  Report Type: 
  Country: None (occurrence: None)
  Receive Date: 20110721
  Receipt Date: 20110712
  Transmission Date: 20111222
  Serious: Yes (Hospitalization, Other)
  Sender: FDA-Public Use
  Company Number: US-US-EMD SERONO, INC.-236071J08USA

PATIENT
  Sex: Male

DRUGS (2)
  1. REBIF [Suspect]
     Indication: MULTIPLE SCLEROSIS
     Route: 058
     Dates: start: 20080320
  2. LOVASTATIN [Concomitant]
     Indication: BLOOD CHOLESTEROL INCREASED

REACTIONS (10)
  - HAEMORRHAGE [None]
  - INTESTINAL OBSTRUCTION [None]
  - POSTOPERATIVE ABSCESS [None]
  - VOLVULUS [None]
  - ABDOMINAL ADHESIONS [None]
  - HERNIA [None]
  - INTESTINAL PERFORATION [None]
  - SMALL INTESTINAL OBSTRUCTION [None]
  - INFECTION [None]
  - ABSCESS [None]
